FAERS Safety Report 8874841 (Version 1)
Quarter: 2012Q4

REPORT INFORMATION
  Report Type: 
  Country: US (occurrence: US)
  Receive Date: 20121030
  Receipt Date: 20121030
  Transmission Date: 20130627
  Serious: Yes (Other)
  Sender: FDA-Public Use
  Company Number: US-PFIZER INC-2012269206

PATIENT
  Sex: Male

DRUGS (2)
  1. MORPHINE SULFATE [Suspect]
     Indication: PAIN
     Dosage: 45 mg, 2x/day
     Route: 065
  2. MORPHINE [Suspect]
     Indication: BREAKTHROUGH PAIN
     Dosage: 15 mg, up to 2 times in the PM
     Route: 065

REACTIONS (3)
  - Accidental overdose [Unknown]
  - Confusional state [Unknown]
  - Inadequate analgesia [Unknown]
